FAERS Safety Report 15485839 (Version 2)
Quarter: 2018Q4

REPORT INFORMATION
  Report Type: Spontaneous
  Country: PL (occurrence: PL)
  Receive Date: 20181010
  Receipt Date: 20181018
  Transmission Date: 20190205
  Serious: Yes (Life-Threatening, Hospitalization, Other)
  Sender: FDA-Public Use
  Company Number: PL-BAXTER-2018BAX011272

PATIENT
  Age: 58 Year
  Sex: Female

DRUGS (20)
  1. FLUKONAZOL ROZTW?R DO INFUZJI 2MG/ML [Suspect]
     Active Substance: FLUCONAZOLE
     Indication: PRODUCT USED FOR UNKNOWN INDICATION
     Route: 065
  2. TACROLIMUS. [Suspect]
     Active Substance: TACROLIMUS
     Dosage: UNK, UNK, UNKNOWN FREQ.
     Route: 065
     Dates: start: 2016, end: 2016
  3. SULFAMETHOXAZOLE, TRIMETHOPRIM [Suspect]
     Active Substance: SULFAMETHOXAZOLE\TRIMETHOPRIM
     Indication: PRODUCT USED FOR UNKNOWN INDICATION
     Dosage: UNK
     Route: 065
     Dates: start: 201612
  4. LINEZOLID. [Suspect]
     Active Substance: LINEZOLID
     Indication: PRODUCT USED FOR UNKNOWN INDICATION
     Route: 065
     Dates: start: 2016
  5. PIPERACILLIN AND TAZOBACTAM [Suspect]
     Active Substance: PIPERACILLIN SODIUM\TAZOBACTAM SODIUM
     Indication: PRODUCT USED FOR UNKNOWN INDICATION
     Dosage: 1 DOSAGE FORM = PIPERACILLIN+TAZOBACTAM
     Route: 065
     Dates: start: 201612
  6. CICLOSPORIN [Suspect]
     Active Substance: CYCLOSPORINE
     Indication: PRODUCT USED FOR UNKNOWN INDICATION
     Route: 065
     Dates: start: 2016
  7. NOREPINEPHRINE. [Concomitant]
     Active Substance: NOREPINEPHRINE
     Indication: CARDIAC DISORDER
     Route: 065
     Dates: start: 2016
  8. TICAGRELOR. [Suspect]
     Active Substance: TICAGRELOR
     Indication: PRODUCT USED FOR UNKNOWN INDICATION
     Route: 065
  9. MEROPENEM. [Suspect]
     Active Substance: MEROPENEM
     Indication: PRODUCT USED FOR UNKNOWN INDICATION
     Route: 065
     Dates: start: 2016
  10. ACETYLSALICYLIC ACID [Suspect]
     Active Substance: ASPIRIN
     Indication: PRODUCT USED FOR UNKNOWN INDICATION
     Route: 065
     Dates: start: 2016
  11. NORADRENALINE [Concomitant]
     Active Substance: NOREPINEPHRINE
     Indication: PRODUCT USED FOR UNKNOWN INDICATION
     Route: 065
  12. TACROLIMUS. [Suspect]
     Active Substance: TACROLIMUS
     Route: 065
  13. MYCOPHENOLIC ACID. [Suspect]
     Active Substance: MYCOPHENOLIC ACID
     Indication: RENAL TRANSPLANT
     Route: 065
     Dates: start: 201606
  14. SULFAMETHOXAZOLE, TRIMETHOPRIM [Suspect]
     Active Substance: SULFAMETHOXAZOLE\TRIMETHOPRIM
     Indication: C-REACTIVE PROTEIN INCREASED
     Dosage: 1 DOSAGE FORM = COTRIMOXAZOLE + TRIMETHOPRIM
     Route: 065
     Dates: start: 2016
  15. SIMULECT [Suspect]
     Active Substance: BASILIXIMAB
     Indication: RENAL TRANSPLANT
     Route: 065
  16. TACROLIMUS. [Suspect]
     Active Substance: TACROLIMUS
     Indication: RENAL TRANSPLANT
     Route: 065
  17. METHYLPREDNISOLONE. [Suspect]
     Active Substance: METHYLPREDNISOLONE
     Indication: PRODUCT USED FOR UNKNOWN INDICATION
     Dosage: 500 MG: FIVE PULSES OF METHYLPREDNISOLONE 500 MG WERE ADMINISTERED INTRAVENOUSLY
     Route: 042
     Dates: start: 201612
  18. CLOPIDOGREL [Suspect]
     Active Substance: CLOPIDOGREL BISULFATE
     Indication: PRODUCT USED FOR UNKNOWN INDICATION
     Route: 065
  19. MIDAZOLAM [Suspect]
     Active Substance: MIDAZOLAM HYDROCHLORIDE
     Indication: SEDATION
     Dosage: UNK, UNKNOWN FREQ.
     Route: 065
  20. CIPROFLOXACINUM CLARIS, 2 MG/ML, ROZTW?R DO INFUZJI [Suspect]
     Active Substance: CIPROFLOXACIN LACTATE
     Indication: PRODUCT USED FOR UNKNOWN INDICATION
     Route: 065
     Dates: start: 201612

REACTIONS (34)
  - Transplant rejection [Unknown]
  - Inflammation [Recovering/Resolving]
  - Brain natriuretic peptide increased [Unknown]
  - Electrocardiogram ST segment depression [Unknown]
  - Diabetic macroangiopathy [Unknown]
  - Delayed graft function [Unknown]
  - Cardiac arrest [Not Recovered/Not Resolved]
  - Extremity necrosis [Unknown]
  - Condition aggravated [Unknown]
  - Blood creatinine increased [Unknown]
  - Pulmonary congestion [Unknown]
  - Renal impairment [Unknown]
  - Acid base balance abnormal [Recovering/Resolving]
  - Upper respiratory tract infection [Unknown]
  - Anaemia [Unknown]
  - Peripheral swelling [Unknown]
  - Loss of consciousness [Unknown]
  - Arteriosclerosis [Unknown]
  - Dyspnoea [Unknown]
  - Coronary artery stenosis [Unknown]
  - Electrolyte imbalance [Recovered/Resolved]
  - Cardiac failure [Unknown]
  - Haematoma [Not Recovered/Not Resolved]
  - Cardiotoxicity [Unknown]
  - Thrombocytosis [Unknown]
  - Anuria [Not Recovered/Not Resolved]
  - Intermittent claudication [Unknown]
  - Immunosuppressant drug level increased [Unknown]
  - Escherichia urinary tract infection [Unknown]
  - Hypotonia [Unknown]
  - Acute coronary syndrome [Unknown]
  - Arrhythmia [Unknown]
  - Pneumonitis [Not Recovered/Not Resolved]
  - Cardiogenic shock [Recovered/Resolved]

NARRATIVE: CASE EVENT DATE: 2016
